FAERS Safety Report 21211981 (Version 1)
Quarter: 2022Q3

REPORT INFORMATION
  Report Type: Spontaneous
  Country: US (occurrence: None)
  Receive Date: 20220815
  Receipt Date: 20220815
  Transmission Date: 20221027
  Serious: No
  Sender: FDA-Public Use
  Company Number: 2022A286714

PATIENT
  Sex: Female

DRUGS (1)
  1. TUDORZA PRESSAIR [Suspect]
     Active Substance: ACLIDINIUM BROMIDE
     Indication: Product used for unknown indication
     Dosage: 322 MICROGRAM, 1 PUFF TWICE DAILY ORAL INHALATION
     Route: 055

REACTIONS (2)
  - Dementia [Unknown]
  - Confusional state [Unknown]
